FAERS Safety Report 16714376 (Version 1)
Quarter: 2019Q3

REPORT INFORMATION
  Report Type: Spontaneous
  Country: US (occurrence: US)
  Receive Date: 20190819
  Receipt Date: 20190819
  Transmission Date: 20191004
  Serious: Yes (Other)
  Sender: FDA-Public Use
  Company Number: US-ZYDUS-039778

PATIENT
  Age: 31 Year
  Sex: Female

DRUGS (4)
  1. LEVOFLOXACIN. [Suspect]
     Active Substance: LEVOFLOXACIN
     Indication: PULMONARY TUBERCULOSIS
     Route: 065
  2. RIFAMPICIN [Suspect]
     Active Substance: RIFAMPIN
     Indication: PULMONARY TUBERCULOSIS
     Route: 065
  3. PYRAZINAMIDE. [Suspect]
     Active Substance: PYRAZINAMIDE
     Indication: PULMONARY TUBERCULOSIS
     Route: 065
  4. ISONIAZID. [Suspect]
     Active Substance: ISONIAZID
     Indication: PULMONARY TUBERCULOSIS
     Route: 065

REACTIONS (13)
  - Fatigue [Unknown]
  - Weight decreased [Unknown]
  - Jaundice [Unknown]
  - Nausea [Unknown]
  - Decreased appetite [Unknown]
  - Drug reaction with eosinophilia and systemic symptoms [Unknown]
  - Acute hepatic failure [Unknown]
  - Chromaturia [Unknown]
  - Headache [Unknown]
  - Vomiting [Unknown]
  - Rash erythematous [Unknown]
  - Abdominal distension [Unknown]
  - Pyrexia [Unknown]
